FAERS Safety Report 8079841-8 (Version None)
Quarter: 2012Q1

REPORT INFORMATION
  Report Type: 
  Country: None (occurrence: None)
  Receive Date: 20120128
  Receipt Date: 20110830
  Transmission Date: 20120608
  Serious: No
  Sender: FDA-Public Use
  Company Number: US-ABBOTT-11P-163-0850670-00

PATIENT
  Sex: Female

DRUGS (3)
  1. HUMIRA [Suspect]
     Indication: CROHN'S DISEASE
     Dosage: DAY 0
     Dates: start: 20110801, end: 20110801
  2. HUMIRA [Suspect]
  3. HUMIRA [Suspect]
     Dosage: WEEK 2

REACTIONS (3)
  - INJECTION SITE PAIN [None]
  - PYREXIA [None]
  - VIRAL INFECTION [None]
